FAERS Safety Report 4784370-0 (Version None)
Quarter: 2005Q3

REPORT INFORMATION
  Report Type: 
  Country: None (occurrence: None)
  Receive Date: 20050929
  Receipt Date: 20050929
  Transmission Date: 20060218
  Serious: Yes (Hospitalization)
  Sender: FDA-Public Use
  Company Number: None

PATIENT
  Age: 55 Year
  Sex: Female
  Weight: 81.6475 kg

DRUGS (3)
  1. TEGRETOL [Suspect]
     Indication: BACK PAIN
     Dosage: ONE TABLET AT HS PO
     Route: 048
     Dates: start: 20020101, end: 20020318
  2. TEGRETOL [Suspect]
     Indication: SLEEP DISORDER
     Dosage: ONE TABLET AT HS PO
     Route: 048
     Dates: start: 20020101, end: 20020318
  3. BACTRIM [Concomitant]

REACTIONS (9)
  - ALOPECIA [None]
  - DEHYDRATION [None]
  - DRUG HYPERSENSITIVITY [None]
  - DRY EYE [None]
  - LUNG DISORDER [None]
  - RESPIRATORY DISORDER [None]
  - SINUSITIS [None]
  - STEVENS-JOHNSON SYNDROME [None]
  - VULVOVAGINAL MYCOTIC INFECTION [None]
